FAERS Safety Report 4587930-5 (Version None)
Quarter: 2005Q1

REPORT INFORMATION
  Report Type: 
  Country: None (occurrence: None)
  Receive Date: 20050215
  Receipt Date: 20050201
  Transmission Date: 20050727
  Serious: Yes (Hospitalization, Disabling)
  Sender: FDA-Public Use
  Company Number: 2004SE07283

PATIENT
  Age: 42 Year
  Sex: Female
  Weight: 51 kg

DRUGS (17)
  1. BLOPRESS [Suspect]
     Indication: DIASTOLIC HYPERTENSION
     Dosage: 4 MG QD PO
     Route: 048
     Dates: start: 20040710, end: 20040826
  2. ADECUT [Suspect]
     Indication: HYPERTENSION
     Dosage: 15 MG QD PO
     Route: 048
     Dates: start: 20031021, end: 20040416
  3. ADECUT [Suspect]
     Indication: HYPERTENSION
     Dosage: 15 MG BID PO
     Route: 048
     Dates: start: 20040417, end: 20040826
  4. ALDACTONE-A [Suspect]
     Indication: HYPERTENSION
     Dosage: 25 MG QD PO
     Route: 048
     Dates: start: 20040715, end: 20040826
  5. TIAPRIM [Suspect]
     Indication: DEMENTIA ALZHEIMER'S TYPE
     Dosage: 25 MG BID PO
     Route: 048
     Dates: start: 20020318, end: 20040826
  6. ARICEPT [Suspect]
     Indication: DEMENTIA ALZHEIMER'S TYPE
     Dosage: 5 MG QD PO
     Route: 048
     Dates: start: 20020318, end: 20040826
  7. LASIX [Suspect]
     Indication: HYPERTENSION
     Dosage: 20 MG QD PO
     Route: 048
     Dates: start: 20040715, end: 20040721
  8. MINIPRESS [Suspect]
     Indication: HYPERTENSION
     Dosage: 1 MG QD PO
     Route: 048
     Dates: start: 20040601, end: 20040603
  9. MINIPRESS [Suspect]
     Indication: HYPERTENSION
     Dosage: 1 MG BID PO
     Route: 048
     Dates: start: 20040604, end: 20040826
  10. PANTOSIN [Suspect]
     Indication: CONSTIPATION
     Dosage: 0.5 G TID PO
     Route: 048
     Dates: start: 20031225
  11. MAGNESIUM OXIDE [Suspect]
     Indication: CONSTIPATION
     Dosage: 0.5 G BID PO
     Route: 048
     Dates: start: 20031225, end: 20040831
  12. BENZALIN [Concomitant]
  13. NEW LECICARBON [Concomitant]
  14. SHINLUCK [Concomitant]
  15. CLARITH [Concomitant]
  16. METOPROLOL TARTRATE [Concomitant]
  17. AMLODIN [Concomitant]

REACTIONS (33)
  - ABDOMINAL DISTENSION [None]
  - AFFECTIVE DISORDER [None]
  - BLISTER [None]
  - BLOOD LACTATE DEHYDROGENASE INCREASED [None]
  - BLOOD PRESSURE FLUCTUATION [None]
  - BLOOD URINE PRESENT [None]
  - BODY TEMPERATURE DECREASED [None]
  - COMMUNICATION DISORDER [None]
  - DEHYDRATION [None]
  - DEPRESSED LEVEL OF CONSCIOUSNESS [None]
  - DISSEMINATED INTRAVASCULAR COAGULATION [None]
  - FAECAL INCONTINENCE [None]
  - GINGIVAL HYPERTROPHY [None]
  - HAEMATURIA [None]
  - HEART RATE DECREASED [None]
  - HEART RATE IRREGULAR [None]
  - HYPERTENSION [None]
  - HYPONATRAEMIA [None]
  - HYPOXIC ENCEPHALOPATHY [None]
  - ILEUS [None]
  - MUSCULAR WEAKNESS [None]
  - NEUROLEPTIC MALIGNANT SYNDROME [None]
  - PNEUMONIA [None]
  - POSTURE ABNORMAL [None]
  - PULSE PRESSURE DECREASED [None]
  - QUADRIPLEGIA [None]
  - RASH PRURITIC [None]
  - RHABDOMYOLYSIS [None]
  - SHOCK [None]
  - TACHYCARDIA [None]
  - URINARY INCONTINENCE [None]
  - URINARY RETENTION [None]
  - WEIGHT DECREASED [None]
